FAERS Safety Report 9366031 (Version 2)
Quarter: 2013Q2

REPORT INFORMATION
  Report Type: Spontaneous
  Country: US (occurrence: US)
  Receive Date: 20130625
  Receipt Date: 20130625
  Transmission Date: 20140414
  Serious: Yes (Other)
  Sender: FDA-Public Use
  Company Number: US-MYLANLABS-2013S1001359

PATIENT
  Age: 75 Year
  Sex: Female
  Weight: 55.34 kg

DRUGS (28)
  1. ROPINIROLE TABLETS [Suspect]
     Indication: PARKINSON^S DISEASE
  2. ROPINIROLE TABLETS [Suspect]
     Indication: PARKINSON^S DISEASE
  3. ROPINIROLE TABLETS [Suspect]
     Indication: PARKINSON^S DISEASE
     Route: 048
     Dates: start: 20081031, end: 201208
  4. ROPINIROLE TABLETS [Suspect]
     Indication: PARKINSON^S DISEASE
     Route: 048
     Dates: start: 201208
  5. ROPINIROLE TABLETS [Suspect]
     Indication: PARKINSON^S DISEASE
     Route: 048
  6. ROPINIROLE TABLETS [Suspect]
     Indication: PARKINSON^S DISEASE
  7. AMANTADINE [Suspect]
  8. AMANTADINE [Suspect]
  9. SINEMET [Suspect]
     Dosage: 50MG/200MG
  10. SINEMET [Suspect]
     Dosage: 50MG/200MG
  11. SINEMET [Suspect]
     Dosage: 50MG/200MG
  12. SINEMET [Suspect]
     Dosage: 50MG/200MG
     Dates: start: 20110411
  13. SINEMET [Suspect]
     Dosage: 50MG/200MG
  14. BABY ASPIRIN [Concomitant]
  15. LACTULOSE [Concomitant]
     Dosage: 10G/15ML 2 TABLESPOONS AT NIGHT IN 8 OZ OF MILK
  16. ONDANSETRON [Concomitant]
  17. STOOL SOFTENER [Concomitant]
  18. HYDROCODONE/APAP [Concomitant]
     Dosage: 7.5/500MG
  19. VITAMIN D3 [Concomitant]
  20. CLONAZEPAM [Concomitant]
     Dosage: AS NEEDED
  21. BISACODYL [Concomitant]
  22. PROLIA [Concomitant]
     Dosage: 1 IN DEC AND 1 IN JUN
  23. SERTRALINE [Concomitant]
  24. SIMVASTATIN [Concomitant]
  25. RECLAST [Concomitant]
     Dosage: 2 INJECTIONS DEC-JUN
  26. FENTANYL TRANSDERMAL SYSTEM [Concomitant]
     Dosage: Q72HRS
     Dates: end: 20120605
  27. CITRACAL-D [Concomitant]
     Dates: end: 20120605
  28. RECLAST [Concomitant]
     Dosage: ONCE YEARLY
     Route: 030

REACTIONS (10)
  - Drug effect increased [Recovering/Resolving]
  - Convulsion [Not Recovered/Not Resolved]
  - Amnesia [Recovering/Resolving]
  - Dementia [Recovering/Resolving]
  - Dizziness [Recovering/Resolving]
  - Balance disorder [Recovering/Resolving]
  - Weight decreased [Recovering/Resolving]
  - Hypoaesthesia [Recovering/Resolving]
  - Tremor [Recovering/Resolving]
  - Hallucination, visual [Recovered/Resolved]
